FAERS Safety Report 4641033-X (Version None)
Quarter: 2005Q2

REPORT INFORMATION
  Report Type: 
  Country: None (occurrence: None)
  Receive Date: 20050421
  Receipt Date: 20050119
  Transmission Date: 20051028
  Serious: No
  Sender: FDA-Public Use
  Company Number: US-BRISTOL-MYERS SQUIBB COMPANY-12836631

PATIENT
  Sex: Male

DRUGS (1)
  1. LAC-HYDRIN [Suspect]

REACTIONS (2)
  - BURNING SENSATION [None]
  - PAIN [None]
